FAERS Safety Report 10024014 (Version 2)
Quarter: 2014Q1

REPORT INFORMATION
  Report Type: Spontaneous
  Country: AU (occurrence: AU)
  Receive Date: 20140320
  Receipt Date: 20140320
  Transmission Date: 20141002
  Serious: Yes (Hospitalization)
  Sender: FDA-Public Use
  Company Number: AU-UCBSA-110130

PATIENT
  Age: 36 Year
  Sex: Female

DRUGS (2)
  1. CIMZIA [Suspect]
     Indication: RHEUMATOID ARTHRITIS
     Route: 058
     Dates: start: 20131219
  2. CIMZIA [Suspect]
     Indication: RHEUMATOID ARTHRITIS
     Dosage: 200 MG MAINTENANCE DOSE
     Route: 058
     Dates: start: 20140211

REACTIONS (7)
  - Drug ineffective [Unknown]
  - White blood cell count increased [Unknown]
  - Drug dose omission [Unknown]
  - Migraine [Recovered/Resolved]
  - Photosensitivity reaction [Recovered/Resolved]
  - Dry eye [Recovered/Resolved]
  - Injection site pallor [Recovered/Resolved]
